FAERS Safety Report 6981936-4 (Version None)
Quarter: 2010Q3

REPORT INFORMATION
  Report Type: 
  Country: None (occurrence: None)
  Receive Date: 20100914
  Receipt Date: 20091124
  Transmission Date: 20110219
  Serious: No
  Sender: FDA-Public Use
  Company Number: US-PFIZER INC-2009275764

PATIENT

DRUGS (1)
  1. LYRICA [Suspect]
     Indication: NEURALGIA
     Dosage: 75 MG, 3X/DAY

REACTIONS (5)
  - DRUG INEFFECTIVE [None]
  - SOMNOLENCE [None]
  - SWELLING [None]
  - VISION BLURRED [None]
  - WEIGHT INCREASED [None]
